FAERS Safety Report 22624169 (Version 2)
Quarter: 2023Q2

REPORT INFORMATION
  Report Type: Spontaneous
  Country: IT (occurrence: IT)
  Receive Date: 20230621
  Receipt Date: 20230627
  Transmission Date: 20230722
  Serious: Yes (Hospitalization)
  Sender: FDA-Public Use
  Company Number: IT-MYLANLABS-2023M1063905

PATIENT
  Age: 17 Year
  Sex: Female

DRUGS (18)
  1. ACETAMINOPHEN [Suspect]
     Active Substance: ACETAMINOPHEN
     Indication: Palliative care
     Dosage: UNK
     Route: 065
  2. ACETAMINOPHEN [Suspect]
     Active Substance: ACETAMINOPHEN
     Indication: Ewing^s sarcoma
  3. ONDANSETRON [Suspect]
     Active Substance: ONDANSETRON
     Indication: Palliative care
     Dosage: UNK
     Route: 065
  4. ONDANSETRON [Suspect]
     Active Substance: ONDANSETRON
     Indication: Ewing^s sarcoma
  5. OMEPRAZOLE [Suspect]
     Active Substance: OMEPRAZOLE
     Indication: Palliative care
     Dosage: UNK
     Route: 065
  6. OMEPRAZOLE [Suspect]
     Active Substance: OMEPRAZOLE
     Indication: Ewing^s sarcoma
  7. FENTANYL [Suspect]
     Active Substance: FENTANYL
     Indication: Palliative care
     Dosage: UNK
     Route: 062
  8. FENTANYL [Suspect]
     Active Substance: FENTANYL
     Indication: Ewing^s sarcoma
  9. PREGABALIN [Suspect]
     Active Substance: PREGABALIN
     Indication: Palliative care
     Dosage: UNK
     Route: 065
  10. PREGABALIN [Suspect]
     Active Substance: PREGABALIN
     Indication: Ewing^s sarcoma
  11. DEXAMETHASONE [Suspect]
     Active Substance: DEXAMETHASONE
     Indication: Palliative care
     Dosage: UNK
     Route: 065
  12. DEXAMETHASONE [Suspect]
     Active Substance: DEXAMETHASONE
     Indication: Ewing^s sarcoma
  13. DULOXETINE [Suspect]
     Active Substance: DULOXETINE
     Indication: Palliative care
     Dosage: UNK
     Route: 065
  14. DULOXETINE [Suspect]
     Active Substance: DULOXETINE
     Indication: Ewing^s sarcoma
  15. MORPHINE HYDROCHLORIDE [Suspect]
     Active Substance: MORPHINE HYDROCHLORIDE
     Indication: Palliative care
     Dosage: UNK
     Route: 065
  16. MORPHINE HYDROCHLORIDE [Suspect]
     Active Substance: MORPHINE HYDROCHLORIDE
     Indication: Ewing^s sarcoma
  17. COTRIMOXAZOLE [Suspect]
     Active Substance: SULFAMETHOXAZOLE\TRIMETHOPRIM
     Indication: Palliative care
     Dosage: UNK
     Route: 065
  18. COTRIMOXAZOLE [Suspect]
     Active Substance: SULFAMETHOXAZOLE\TRIMETHOPRIM
     Indication: Ewing^s sarcoma

REACTIONS (7)
  - Psychomotor hyperactivity [Unknown]
  - Pain [Not Recovered/Not Resolved]
  - Anxiety [Unknown]
  - Pyrexia [Unknown]
  - Vomiting [Unknown]
  - Nausea [Unknown]
  - Drug ineffective [Unknown]
